FAERS Safety Report 16672970 (Version 8)
Quarter: 2021Q4

REPORT INFORMATION
  Report Type: Spontaneous
  Country: CA (occurrence: CA)
  Receive Date: 20190806
  Receipt Date: 20211029
  Transmission Date: 20220303
  Serious: Yes (Death, Life-Threatening, Hospitalization, Other)
  Sender: FDA-Public Use
  Company Number: CA-PFIZER INC-2019329931

PATIENT
  Sex: Female
  Weight: .65 kg

DRUGS (26)
  1. ERYTHROMYCIN [Suspect]
     Active Substance: ERYTHROMYCIN
     Dosage: UNK
     Route: 064
  2. MEROPENEM [Suspect]
     Active Substance: MEROPENEM
     Indication: Respiratory tract infection
     Dosage: 20 MG/KG, 2X/DAY (EVERY 12 HOURS)
  3. VANCOMYCIN HYDROCHLORIDE [Suspect]
     Active Substance: VANCOMYCIN HYDROCHLORIDE
     Indication: Antibiotic therapy
     Dosage: 15 MG/KG, 1X/DAY (EVERY 24 HOURS)
     Route: 042
  4. VANCOMYCIN HYDROCHLORIDE [Suspect]
     Active Substance: VANCOMYCIN HYDROCHLORIDE
     Indication: Evidence based treatment
     Dosage: 15 MG/KG, 1X/DAY
     Route: 065
  5. AMPICILLIN [Suspect]
     Active Substance: AMPICILLIN
     Indication: Evidence based treatment
     Dosage: UNK
     Route: 064
  6. AMPICILLIN [Suspect]
     Active Substance: AMPICILLIN
     Dosage: 50 MG/KG, 2X/DAY (1 EVERY 12 HOUR(S))
     Route: 064
  7. AMPICILLIN [Suspect]
     Active Substance: AMPICILLIN
     Indication: Antibiotic therapy
     Dosage: 50 MG/KG, 2X/DAY (EVERY 12 HOURS)
     Route: 064
  8. AMPICILLIN [Suspect]
     Active Substance: AMPICILLIN
     Indication: Evidence based treatment
  9. AMPICILLIN [Suspect]
     Active Substance: AMPICILLIN
     Indication: Antibiotic therapy
     Dosage: UNK
     Route: 064
  10. AMPICILLIN [Suspect]
     Active Substance: AMPICILLIN
     Indication: Evidence based treatment
  11. AMOXICILLIN [Suspect]
     Active Substance: AMOXICILLIN
     Dosage: UNK
     Route: 064
  12. CEFOTAXIME [Suspect]
     Active Substance: CEFOTAXIME SODIUM
     Indication: Antibiotic therapy
     Dosage: 50 MG/KG, 2X/DAY (EVERY 12 HOURS)
     Route: 042
  13. CEFOTAXIME [Suspect]
     Active Substance: CEFOTAXIME SODIUM
     Indication: Renal failure
     Dosage: 50 MG/KG, 4X/DAY (1 EVERY 6 HOURS)
     Route: 064
  14. CEFOTAXIME [Suspect]
     Active Substance: CEFOTAXIME SODIUM
     Indication: Evidence based treatment
  15. GENTAMICIN SULFATE [Suspect]
     Active Substance: GENTAMICIN SULFATE
     Indication: Antibiotic therapy
     Dosage: 5 MG/KG; UNK  (1 EVERY 48 HOURS )
     Route: 042
  16. GENTAMICIN SULFATE [Suspect]
     Active Substance: GENTAMICIN SULFATE
     Indication: Evidence based treatment
  17. BETAMETHASONE [Suspect]
     Active Substance: BETAMETHASONE
     Dosage: UNK
     Route: 064
  18. LEVOFLOXACIN [Suspect]
     Active Substance: LEVOFLOXACIN
     Indication: Stenotrophomonas infection
     Dosage: 10 MG/KG, 2X/DAY (1 EVERY 12 HOUR(S))
     Route: 048
  19. LEVOFLOXACIN [Suspect]
     Active Substance: LEVOFLOXACIN
     Dosage: 1 MG/KG, 2X/DAY (1 EVERY 12 HOUR(S))
     Route: 064
  20. LEVOFLOXACIN [Suspect]
     Active Substance: LEVOFLOXACIN
     Dosage: 1 MG/KG, UNK
     Route: 064
  21. LEVOFLOXACIN [Suspect]
     Active Substance: LEVOFLOXACIN
     Dosage: 10 MG/KG
     Route: 048
  22. SULFAMETHOXAZOLE\TRIMETHOPRIM [Suspect]
     Active Substance: SULFAMETHOXAZOLE\TRIMETHOPRIM
     Indication: Stenotrophomonas infection
     Dosage: 5 MG/KG, 4X/DAY (1 EVERY 6 HOUR(S))
     Route: 065
  23. SULFAMETHOXAZOLE\TRIMETHOPRIM [Suspect]
     Active Substance: SULFAMETHOXAZOLE\TRIMETHOPRIM
     Dosage: 2 MG/KG, 4X/DAY (1 EVERY 6 HOUR(S))
     Route: 064
  24. SULFAMETHOXAZOLE\TRIMETHOPRIM [Suspect]
     Active Substance: SULFAMETHOXAZOLE\TRIMETHOPRIM
     Dosage: 1 MG/KG, 2X/DAY (1 EVERY 12 HOUR(S))
     Route: 064
  25. SULFAMETHOXAZOLE\TRIMETHOPRIM [Suspect]
     Active Substance: SULFAMETHOXAZOLE\TRIMETHOPRIM
     Dosage: 3 MG/KG, UNK
     Route: 064
  26. SULFAMETHOXAZOLE\TRIMETHOPRIM [Suspect]
     Active Substance: SULFAMETHOXAZOLE\TRIMETHOPRIM
     Dosage: 2.5 MG/KG, 4X/DAY (1 EVERY 6 HOUR(S))
     Route: 064

REACTIONS (13)
  - Maternal exposure during pregnancy [Fatal]
  - Stenotrophomonas infection [Fatal]
  - Pneumonia bacterial [Fatal]
  - Renal impairment neonatal [Fatal]
  - Hypotonia neonatal [Fatal]
  - Premature baby [Fatal]
  - Umbilical erythema [Fatal]
  - Lethargy [Fatal]
  - Respiratory disorder neonatal [Fatal]
  - Neonatal pneumonia [Fatal]
  - Sepsis neonatal [Fatal]
  - Death neonatal [Fatal]
  - Urine output decreased [Fatal]
